FAERS Safety Report 9466491 (Version 2)
Quarter: 2013Q4

REPORT INFORMATION
  Report Type: Spontaneous
  Country: FR (occurrence: FR)
  Receive Date: 20130820
  Receipt Date: 20131017
  Transmission Date: 20140711
  Serious: Yes (Other)
  Sender: FDA-Public Use
  Company Number: FR-AMGEN-FRASP2013057045

PATIENT
  Age: 45 Year
  Sex: Female

DRUGS (3)
  1. NPLATE [Suspect]
     Indication: IMMUNE THROMBOCYTOPENIC PURPURA
     Dosage: 10 MUG/KG, UNK
     Route: 058
     Dates: start: 200906, end: 201010
  2. IMMUNOGLOBULIN I.V [Concomitant]
     Route: 065
  3. IMMUNOSUPPRESSANTS [Concomitant]

REACTIONS (6)
  - Drug effect decreased [Unknown]
  - Platelet count abnormal [Not Recovered/Not Resolved]
  - Haemorrhage [Unknown]
  - Thrombocytopenia [Unknown]
  - Blood blister [Unknown]
  - Gastrointestinal disorder [Unknown]
